FAERS Safety Report 6531732-7 (Version None)
Quarter: 2010Q1

REPORT INFORMATION
  Report Type: 
  Country: None (occurrence: None)
  Receive Date: 20100107
  Receipt Date: 20100107
  Transmission Date: 20100710
  Serious: No
  Sender: FDA-Public Use
  Company Number: None

PATIENT
  Age: 56 Year
  Sex: Female
  Weight: 83.9154 kg

DRUGS (1)
  1. ZICAM OXYMETAZOLINE HYDROCHLORIDE MATRIX INITIATIVES [Suspect]
     Indication: NASAL CONGESTION
     Dosage: ABOUT THREE DAYS

REACTIONS (3)
  - ANOSMIA [None]
  - DRUG INEFFECTIVE [None]
  - NERVE INJURY [None]
